FAERS Safety Report 8881773 (Version 1)
Quarter: 2012Q4

REPORT INFORMATION
  Report Type: 
  Country: US (occurrence: US)
  Receive Date: 20121101
  Receipt Date: 20121101
  Transmission Date: 20130627
  Serious: Yes (Other)
  Sender: FDA-Public Use
  Company Number: US-PFIZER INC-2012269222

PATIENT
  Age: 66 Year
  Sex: Female
  Weight: 56.24 kg

DRUGS (5)
  1. TOVIAZ [Suspect]
     Indication: BLADDER DISORDER
     Dosage: 4 mg, daily
     Dates: start: 201210
  2. OXYBUTYNIN [Suspect]
     Indication: BLADDER DISORDER
     Dosage: UNK
  3. VESICARE [Suspect]
     Indication: BLADDER DISORDER
     Dosage: UNK
  4. TRAZODONE [Concomitant]
     Indication: DEPRESSION
     Dosage: UNK
  5. TRAZODONE [Concomitant]
     Indication: SLEEP PROBLEM

REACTIONS (3)
  - Dizziness [Not Recovered/Not Resolved]
  - Dry mouth [Unknown]
  - Drug ineffective [Unknown]
